FAERS Safety Report 23027547 (Version 1)
Quarter: 2023Q4

REPORT INFORMATION
  Report Type: Spontaneous
  Country: CN (occurrence: CN)
  Receive Date: 20231004
  Receipt Date: 20231004
  Transmission Date: 20240110
  Serious: Yes (Other)
  Sender: FDA-Public Use
  Company Number: None

PATIENT
  Age: 9 Year
  Sex: Female
  Weight: 30 kg

DRUGS (3)
  1. KEPPRA [Suspect]
     Active Substance: LEVETIRACETAM
     Indication: Epilepsy
     Dosage: 0.25 GRAM, 2X/DAY (BID)
     Route: 048
     Dates: start: 20230515, end: 2023
  2. KEPPRA [Suspect]
     Active Substance: LEVETIRACETAM
     Dosage: 0.25 G IN THE MORNING AND 0.5 G IN THE EVENING
     Route: 048
     Dates: start: 20230704, end: 202307
  3. KEPPRA [Suspect]
     Active Substance: LEVETIRACETAM
     Dosage: 0.5 GRAM, 2X/DAY (BID)
     Route: 048
     Dates: start: 20230711, end: 20230822

REACTIONS (3)
  - Epilepsy [Unknown]
  - Hepatic function abnormal [Recovering/Resolving]
  - Off label use [Unknown]

NARRATIVE: CASE EVENT DATE: 20230703
